FAERS Safety Report 6630278-5 (Version None)
Quarter: 2010Q1

REPORT INFORMATION
  Report Type: 
  Country: None (occurrence: None)
  Receive Date: 20100311
  Receipt Date: 20100304
  Transmission Date: 20100710
  Serious: Yes (Hospitalization)
  Sender: FDA-Public Use
  Company Number: B0639127B

PATIENT

DRUGS (1)
  1. AUGMENTIN '125' [Suspect]
     Indication: BACTERIURIA
     Dates: start: 20100224

REACTIONS (3)
  - DRUG EXPOSURE DURING PREGNANCY [None]
  - DYSPNOEA [None]
  - FOETAL MALFORMATION [None]
